FAERS Safety Report 8014598-8 (Version None)
Quarter: 2011Q4

REPORT INFORMATION
  Report Type: 
  Country: None (occurrence: None)
  Receive Date: 20111229
  Receipt Date: 20111223
  Transmission Date: 20120403
  Serious: Yes (Hospitalization)
  Sender: FDA-Public Use
  Company Number: RU-GLAXOSMITHKLINE-Z0012304D

PATIENT
  Sex: Male
  Weight: 95 kg

DRUGS (3)
  1. AMOXICILLIN AND CLAVULANATE POTASSIUM [Concomitant]
     Indication: FEBRILE NEUTROPENIA
     Dosage: 625MG THREE TIMES PER DAY
     Route: 048
     Dates: start: 20111223
  2. OFATUMUMAB [Suspect]
     Indication: CHRONIC LYMPHOCYTIC LEUKAEMIA REFRACTORY
     Route: 042
     Dates: start: 20111006
  3. AMIKACIN [Concomitant]
     Indication: URINARY TRACT INFECTION
     Dosage: 500MG TWICE PER DAY
     Route: 042
     Dates: start: 20111226

REACTIONS (1)
  - FEBRILE NEUTROPENIA [None]
